FAERS Safety Report 4685893-5 (Version None)
Quarter: 2005Q2

REPORT INFORMATION
  Report Type: 
  Country: None (occurrence: None)
  Receive Date: 20050606
  Receipt Date: 20050527
  Transmission Date: 20051028
  Serious: Yes (Other)
  Sender: FDA-Public Use
  Company Number: 130174USA

PATIENT
  Age: 50 Year
  Sex: Female

DRUGS (1)
  1. COPAXONE [Suspect]
     Indication: MULTIPLE SCLEROSIS
     Dates: start: 19981217, end: 20020101

REACTIONS (3)
  - ABDOMINAL NEOPLASM [None]
  - METASTASES TO LYMPH NODES [None]
  - OVARIAN CANCER [None]
